FAERS Safety Report 12099557 (Version 1)
Quarter: 2016Q1

REPORT INFORMATION
  Report Type: Spontaneous
  Country: US (occurrence: US)
  Receive Date: 20160222
  Receipt Date: 20160222
  Transmission Date: 20160526
  Serious: Yes (Other)
  Sender: FDA-Public Use
  Company Number: US-009507513-1602USA009329

PATIENT
  Age: 40 Year
  Sex: Male

DRUGS (5)
  1. FLUTICASONE [Concomitant]
     Active Substance: FLUTICASONE\FLUTICASONE PROPIONATE
     Indication: COUGH
     Dosage: UNK
     Route: 055
  2. ALBUTEROL (+) IPRATROPIUM BROMIDE [Concomitant]
     Indication: COUGH
     Dosage: UNK
     Route: 055
  3. DECA-DURABOLIN [Suspect]
     Active Substance: NANDROLONE DECANOATE
     Dosage: UNK
  4. METHANDROSTENOLONE [Suspect]
     Active Substance: METHANDROSTENOLONE
     Dosage: UNK
  5. TESTOSTERONE. [Suspect]
     Active Substance: TESTOSTERONE
     Dosage: UNK

REACTIONS (3)
  - Drug-induced liver injury [Unknown]
  - Renal tubular disorder [Unknown]
  - Acute kidney injury [Unknown]
